FAERS Safety Report 12888674 (Version 2)
Quarter: 2016Q4

REPORT INFORMATION
  Report Type: Spontaneous
  Country: FR (occurrence: FR)
  Receive Date: 20161027
  Receipt Date: 20161108
  Transmission Date: 20170207
  Serious: Yes (Other)
  Sender: FDA-Public Use
  Company Number: PHHY2016FR098985

PATIENT
  Sex: Female
  Weight: 55 kg

DRUGS (4)
  1. VIVELLE-DOT [Suspect]
     Active Substance: ESTRADIOL
     Indication: ASSISTED FERTILISATION
     Dosage: 2 DF, EVERY 3 DAYS
     Route: 062
     Dates: start: 20160603, end: 20160912
  2. PROVAMES [Suspect]
     Active Substance: ESTRADIOL
     Indication: PRODUCT USED FOR UNKNOWN INDICATION
     Dosage: UNK
     Route: 067
     Dates: start: 20160615, end: 20160907
  3. FOLIC ACID. [Suspect]
     Active Substance: FOLIC ACID
     Indication: ASSISTED FERTILISATION
     Dosage: UNK
     Route: 048
     Dates: start: 20160501, end: 20160912
  4. UTROGESTAN [Suspect]
     Active Substance: PROGESTERONE
     Indication: ASSISTED FERTILISATION
     Dosage: UNK
     Route: 067
     Dates: start: 20160707, end: 20160912

REACTIONS (3)
  - Blighted ovum [Unknown]
  - Maternal exposure during pregnancy [Unknown]
  - Off label use [Unknown]
